FAERS Safety Report 15276730 (Version 3)
Quarter: 2018Q4

REPORT INFORMATION
  Report Type: Report from Study
  Country: US (occurrence: US)
  Receive Date: 20180814
  Receipt Date: 20181030
  Transmission Date: 20190204
  Serious: Yes (Other)
  Sender: FDA-Public Use
  Company Number: US-TESARO, INC-US-2018TSO03928

PATIENT
  Sex: Female
  Weight: 66.67 kg

DRUGS (2)
  1. ZEJULA [Suspect]
     Active Substance: NIRAPARIB
     Indication: OVARIAN CANCER
     Dosage: 300 MG, QD
     Dates: start: 20180413, end: 20180421
  2. ZEJULA [Suspect]
     Active Substance: NIRAPARIB
     Dosage: 100 MG, HS WITHOUT FOOD
     Route: 048
     Dates: start: 20180425

REACTIONS (5)
  - Neuropathy peripheral [Recovering/Resolving]
  - Fatigue [Recovered/Resolved]
  - Diabetes mellitus [Unknown]
  - Nerve compression [Not Recovered/Not Resolved]
  - Blood pressure abnormal [Recovering/Resolving]
